FAERS Safety Report 9845523 (Version 1)
Quarter: 2014Q1

REPORT INFORMATION
  Report Type: Spontaneous
  Country: DE (occurrence: None)
  Receive Date: 20140123
  Receipt Date: 20140123
  Transmission Date: 20141002
  Serious: Yes (Other)
  Sender: FDA-Public Use
  Company Number: AUR-APL-2013-10591

PATIENT
  Age: 46 Year
  Sex: Male

DRUGS (7)
  1. SUMATRIPTAN (SUMATRIPTAN) [Suspect]
     Indication: PRODUCT USED FOR UNKNOWN INDICATION
  2. TRAMADOL (TRAMADOL) [Concomitant]
  3. MORPHINE (MORPHINE) [Concomitant]
  4. IBUPROFEN (IBUPROFEN) [Concomitant]
  5. AMOXICILLIN (AMOXICILLIN) [Concomitant]
  6. ALFUZOSIN (ALFUZOSIN) [Concomitant]
  7. PANTOPRAZOL (PANTOPRAZOLE SODIUM SESQUIHYDRATE) [Concomitant]

REACTIONS (2)
  - Dyspnoea [None]
  - Angina pectoris [None]
